FAERS Safety Report 8083907-6 (Version None)
Quarter: 2012Q1

REPORT INFORMATION
  Report Type: 
  Country: None (occurrence: None)
  Receive Date: 20120128
  Receipt Date: 20110112
  Transmission Date: 20120608
  Serious: No
  Sender: FDA-Public Use
  Company Number: US-ABBOTT-11P-163-0697300-00

PATIENT
  Age: 29 Year
  Sex: Female

DRUGS (3)
  1. HUMIRA [Suspect]
     Indication: CROHN'S DISEASE
  2. BIRTH CONTROL [Concomitant]
     Indication: PRODUCT USED FOR UNKNOWN INDICATION
  3. CELEXA [Concomitant]
     Indication: DEPRESSION

REACTIONS (8)
  - CROHN'S DISEASE [None]
  - FEELING COLD [None]
  - COLD SWEAT [None]
  - PERIPHERAL COLDNESS [None]
  - FEELING HOT [None]
  - ABDOMINAL PAIN [None]
  - HYPERHIDROSIS [None]
  - DIARRHOEA [None]
